FAERS Safety Report 7690049-8 (Version None)
Quarter: 2011Q3

REPORT INFORMATION
  Report Type: 
  Country: None (occurrence: None)
  Receive Date: 20110818
  Receipt Date: 20110815
  Transmission Date: 20111222
  Serious: No
  Sender: FDA-Public Use
  Company Number: US-TEVA-296618USA

PATIENT
  Sex: Female

DRUGS (1)
  1. COPAXONE [Suspect]
     Indication: MULTIPLE SCLEROSIS
     Route: 058

REACTIONS (7)
  - CHILLS [None]
  - INJECTION SITE REACTION [None]
  - EAR DISCOMFORT [None]
  - OCULAR HYPERAEMIA [None]
  - ERYTHEMA [None]
  - INJECTION SITE URTICARIA [None]
  - INJECTION SITE INDURATION [None]
